FAERS Safety Report 12477517 (Version 2)
Quarter: 2016Q2

REPORT INFORMATION
  Report Type: Spontaneous
  Country: US (occurrence: US)
  Receive Date: 20160617
  Receipt Date: 20160621
  Transmission Date: 20160815
  Serious: Yes (Other)
  Sender: FDA-Public Use
  Company Number: PHHY2016US081197

PATIENT
  Age: 65 Year
  Sex: Female

DRUGS (1)
  1. DEFEROXAMINE [Suspect]
     Active Substance: DEFEROXAMINE\DEFEROXAMINE MESYLATE
     Indication: IRON OVERLOAD
     Route: 065

REACTIONS (3)
  - Mucormycosis [Unknown]
  - Arterial thrombosis [Unknown]
  - Fungal endocarditis [Unknown]
